FAERS Safety Report 16526903 (Version 1)
Quarter: 2019Q3

REPORT INFORMATION
  Report Type: Spontaneous
  Country: DE (occurrence: DE)
  Receive Date: 20190703
  Receipt Date: 20190703
  Transmission Date: 20191004
  Serious: Yes (Hospitalization, Other)
  Sender: FDA-Public Use
  Company Number: DE-ELI_LILLY_AND_COMPANY-DE201907001120

PATIENT
  Age: 51 Year
  Sex: Female
  Weight: 47 kg

DRUGS (17)
  1. 5-FLUORACILO [Suspect]
     Active Substance: FLUOROURACIL
     Indication: LIP AND/OR ORAL CAVITY CANCER
     Dosage: UNK UNK, UNKNOWN
     Route: 065
     Dates: start: 20190222
  2. METAMIZOLE [Concomitant]
     Active Substance: METAMIZOLE
     Indication: CANCER PAIN
     Dosage: 1000 MG, 0.2 DAY
     Route: 048
     Dates: start: 20190301
  3. PANTOZOL [Concomitant]
     Active Substance: PANTOPRAZOLE SODIUM
     Indication: GASTRITIS PROPHYLAXIS
     Dosage: 40 MG, DAILY
     Route: 065
     Dates: start: 20190301, end: 2019
  4. MOVICOL [MACROGOL 3350;POTASSIUM CHLORIDE;SOD [Concomitant]
     Indication: CONSTIPATION
     Dosage: 1 BAG, DAILY
     Route: 048
     Dates: start: 20190311
  5. TRAMAL LONG [Concomitant]
     Active Substance: TRAMADOL
     Indication: CANCER PAIN
     Dosage: 50 MG, DAILY
     Route: 048
     Dates: start: 20190304, end: 20190304
  6. TRAMAL LONG [Concomitant]
     Active Substance: TRAMADOL
     Dosage: 100 MG/ML, UNKNOWN
     Route: 048
     Dates: start: 20190301, end: 201905
  7. CISPLATIN. [Suspect]
     Active Substance: CISPLATIN
     Indication: LIP AND/OR ORAL CAVITY CANCER
     Dosage: UNK, UNKNOWN
     Route: 065
     Dates: start: 20190222
  8. LORAZEPAM. [Concomitant]
     Active Substance: LORAZEPAM
     Indication: CLAUSTROPHOBIA
     Dosage: 0.5 MG, UNKNOWN
     Route: 048
     Dates: start: 20181008
  9. AMPHO MORONAL [Concomitant]
     Active Substance: AMPHOTERICIN B
     Dosage: UNK UNK, 0.2 DAY
     Route: 048
     Dates: start: 201903, end: 201903
  10. ANAESTHESIN [Concomitant]
     Indication: MUCOSAL INFLAMMATION
     Dosage: 8 MG, UNKNOWN
     Route: 048
     Dates: start: 20181101
  11. AMPHO MORONAL [Concomitant]
     Active Substance: AMPHOTERICIN B
     Dosage: 5 MG PER 100 ML, 0.2 DAY
     Route: 061
     Dates: start: 201904
  12. TRAMAL LONG [Concomitant]
     Active Substance: TRAMADOL
     Dosage: 50 MG, UNKNOWN
     Route: 048
     Dates: start: 20190305, end: 2019
  13. ERBITUX [Suspect]
     Active Substance: CETUXIMAB
     Indication: LIP AND/OR ORAL CAVITY CANCER
     Dosage: UNK, UNKNOWN
     Route: 065
     Dates: start: 20190222
  14. PANTOZOL [Concomitant]
     Active Substance: PANTOPRAZOLE SODIUM
     Dosage: 20 MG, DAILY
     Route: 048
     Dates: start: 201905
  15. 5-FLUORACILO [Suspect]
     Active Substance: FLUOROURACIL
     Dosage: UNK UNK, WEEKLY (1/W)
     Route: 065
     Dates: start: 20190430
  16. AMPHO MORONAL [Concomitant]
     Active Substance: AMPHOTERICIN B
     Indication: MUCOSAL INFLAMMATION
     Dosage: 100 MG/ML, 0.2 DAY
     Route: 048
     Dates: start: 20181030
  17. LIDOCAINE. [Concomitant]
     Active Substance: LIDOCAINE
     Indication: MUCOSAL INFLAMMATION
     Dosage: UNK UNK, UNKNOWN
     Route: 061
     Dates: start: 20190301

REACTIONS (9)
  - Hypophagia [Unknown]
  - Decreased appetite [Unknown]
  - Mucosal inflammation [Not Recovered/Not Resolved]
  - Vomiting [Unknown]
  - Asthenia [Unknown]
  - Hypotension [Unknown]
  - Cachexia [Unknown]
  - Nausea [Unknown]
  - General physical health deterioration [Recovered/Resolved with Sequelae]

NARRATIVE: CASE EVENT DATE: 20190508
